FAERS Safety Report 7556303-5 (Version None)
Quarter: 2011Q2

REPORT INFORMATION
  Report Type: 
  Country: None (occurrence: None)
  Receive Date: 20110620
  Receipt Date: 20110617
  Transmission Date: 20111010
  Serious: No
  Sender: FDA-Public Use
  Company Number: US-PFIZER INC-2011134193

PATIENT
  Sex: Female
  Weight: 59 kg

DRUGS (1)
  1. ALDACTONE [Suspect]
     Indication: MALIGNANT HYPERTENSION
     Dosage: 25 MG, 1X/DAY
     Route: 048
     Dates: start: 20110615, end: 20110616

REACTIONS (2)
  - TINNITUS [None]
  - INSOMNIA [None]
